FAERS Safety Report 8906636 (Version 2)
Quarter: 2013Q1

REPORT INFORMATION
  Report Type: Spontaneous
  Country: VE (occurrence: VE)
  Receive Date: 20121114
  Receipt Date: 20130211
  Transmission Date: 20140127
  Serious: Yes (Death, Other)
  Sender: FDA-Public Use
  Company Number: VE-ELI_LILLY_AND_COMPANY-VE201211002946

PATIENT
  Sex: Female

DRUGS (4)
  1. HUMALOG 25% LISPRO, 75% NPL [Suspect]
     Dosage: 8 U, EACH MORNING
     Route: 064
     Dates: start: 20120126
  2. HUMALOG 25% LISPRO, 75% NPL [Suspect]
     Dosage: 5 U, EACH EVENING
     Route: 064
     Dates: start: 20120126
  3. ALDOMET [Concomitant]
     Indication: HYPERTENSION
     Dosage: 25 MG, UNKNOWN
  4. ADALAT [Concomitant]
     Indication: HYPERTENSION
     Dosage: UNK, UNKNOWN

REACTIONS (3)
  - Cardiac arrest [Fatal]
  - Premature baby [Unknown]
  - Foetal exposure during pregnancy [Recovered/Resolved]
